FAERS Safety Report 6446848-3 (Version None)
Quarter: 2009Q4

REPORT INFORMATION
  Report Type: 
  Country: None (occurrence: None)
  Receive Date: 20091119
  Receipt Date: 20091110
  Transmission Date: 20100525
  Serious: Yes (Other)
  Sender: FDA-Public Use
  Company Number: CA-JNJFOC-20091103426

PATIENT
  Sex: Male
  Weight: 68 kg

DRUGS (2)
  1. REMICADE [Suspect]
     Dosage: 7 INFUSIONS
     Route: 042
     Dates: start: 20080115, end: 20090929
  2. REMICADE [Suspect]
     Indication: COLITIS ULCERATIVE
     Dosage: 8 INFUSIONS
     Route: 042
     Dates: start: 20080115, end: 20090929

REACTIONS (2)
  - COLECTOMY TOTAL [None]
  - DRUG INEFFECTIVE [None]
